FAERS Safety Report 5494982-7 (Version None)
Quarter: 2007Q4

REPORT INFORMATION
  Report Type: 
  Country: None (occurrence: None)
  Receive Date: 20071024
  Receipt Date: 20071018
  Transmission Date: 20080405
  Serious: Yes (Hospitalization)
  Sender: FDA-Public Use
  Company Number: SE-AVENTIS-200714923EU

PATIENT
  Age: 79 Year
  Sex: Female

DRUGS (3)
  1. KLEXANE                            /01708202/ [Suspect]
     Indication: DRUG USE FOR UNKNOWN INDICATION
     Dosage: DOSE: UNK
     Route: 058
     Dates: start: 20070518, end: 20070520
  2. PLAVIX [Suspect]
     Indication: DRUG USE FOR UNKNOWN INDICATION
     Route: 048
     Dates: start: 20070519, end: 20070520
  3. TROMBYL [Suspect]
     Indication: DRUG USE FOR UNKNOWN INDICATION
     Route: 048
     Dates: end: 20070520

REACTIONS (2)
  - GASTROINTESTINAL HAEMORRHAGE [None]
  - SUBARACHNOID HAEMORRHAGE [None]
